FAERS Safety Report 9592598 (Version 2)
Quarter: 2013Q4

REPORT INFORMATION
  Report Type: Spontaneous
  Country: BR (occurrence: BR)
  Receive Date: 20131004
  Receipt Date: 20131004
  Transmission Date: 20140711
  Serious: Yes (Other)
  Sender: FDA-Public Use
  Company Number: BR-AMGEN-BRASP2012060115

PATIENT
  Age: 72 Year
  Sex: Female
  Weight: 88 kg

DRUGS (12)
  1. ENBREL [Suspect]
     Indication: RHEUMATOID ARTHRITIS
     Dosage: 50 MG, ONCE WEEKLY
     Route: 058
     Dates: start: 201209, end: 20121004
  2. ENBREL [Suspect]
     Dosage: 50 MG, QWK
     Route: 058
     Dates: end: 2013
  3. CAPTOPRIL [Concomitant]
     Indication: HYPERTENSION
     Dosage: 25 MG, 2X/DAY
     Route: 048
  4. CAPTOPRIL [Concomitant]
     Dosage: 1 TABLET (25 MG), 2X/DAY
     Route: 048
  5. FOLIC ACID [Concomitant]
     Dosage: UNK
  6. DEFLAZACORT [Concomitant]
     Indication: RHEUMATOID ARTHRITIS
     Dosage: UNK
  7. CELEBRA [Concomitant]
     Indication: RHEUMATOID ARTHRITIS
     Dosage: UNK
  8. CALTRATE                           /07357001/ [Concomitant]
     Indication: RHEUMATOID ARTHRITIS
     Dosage: UNK
  9. ADDERA D3 [Concomitant]
     Dosage: UNK
  10. OMEPRAZOLE [Concomitant]
     Indication: ABDOMINAL PAIN UPPER
     Dosage: UNK
  11. OMEPRAZOLE [Concomitant]
     Indication: GASTRIC DISORDER
  12. HYDROCHLOROTHIAZIDE [Concomitant]
     Dosage: 1 TABLET A DAY

REACTIONS (3)
  - Varicose ulceration [Unknown]
  - Erysipelas [Not Recovered/Not Resolved]
  - Nasopharyngitis [Unknown]
